FAERS Safety Report 6719576-4 (Version None)
Quarter: 2010Q2

REPORT INFORMATION
  Report Type: 
  Country: None (occurrence: None)
  Receive Date: 20100511
  Receipt Date: 20100427
  Transmission Date: 20101027
  Serious: Yes (Hospitalization, Disabling, Other)
  Sender: FDA-Public Use
  Company Number: US-ELI_LILLY_AND_COMPANY-US201002007023

PATIENT
  Sex: Female
  Weight: 49.433 kg

DRUGS (7)
  1. EVISTA [Suspect]
     Indication: RESORPTION BONE INCREASED
     Dosage: 60 MG, DAILY (1/D)
     Route: 048
     Dates: start: 20000301, end: 20040101
  2. ATENOLOL [Concomitant]
  3. NORVASC [Concomitant]
  4. PREVACID [Concomitant]
  5. ASPIRIN [Concomitant]
  6. XANAX [Concomitant]
  7. KEFZOL [Concomitant]

REACTIONS (7)
  - ANGINA UNSTABLE [None]
  - ATRIAL FIBRILLATION [None]
  - BLOOD GLUCOSE INCREASED [None]
  - EMBOLIC STROKE [None]
  - MYOCARDIAL INFARCTION [None]
  - RECTOCELE [None]
  - URETHRAL CARUNCLE [None]
